FAERS Safety Report 22033152 (Version 3)
Quarter: 2023Q2

REPORT INFORMATION
  Report Type: Spontaneous
  Country: ES (occurrence: ES)
  Receive Date: 20230224
  Receipt Date: 20230414
  Transmission Date: 20230721
  Serious: Yes (Other)
  Sender: FDA-Public Use
  Company Number: ES-VERTEX PHARMACEUTICALS-2023-002561

PATIENT
  Age: 5 Year
  Sex: Female

DRUGS (3)
  1. ORKAMBI [Suspect]
     Active Substance: IVACAFTOR\LUMACAFTOR
     Indication: Cystic fibrosis
     Dosage: 1 PACKET (150 MG LUMACAFTOR/188 MG IVACAFTOR), BID
     Route: 048
     Dates: start: 202011
  2. AZTREONAM [Concomitant]
     Active Substance: AZTREONAM
     Dosage: NEBULIZER, ON AND OFF USE
  3. DNA [Concomitant]

REACTIONS (1)
  - Infective pulmonary exacerbation of cystic fibrosis [Recovering/Resolving]

NARRATIVE: CASE EVENT DATE: 20211001
